FAERS Safety Report 4286475-X (Version None)
Quarter: 2004Q1

REPORT INFORMATION
  Report Type: 
  Country: None (occurrence: None)
  Receive Date: 20040204
  Receipt Date: 20040122
  Transmission Date: 20041129
  Serious: Yes (Death)
  Sender: FDA-Public Use
  Company Number: 2003120604

PATIENT
  Sex: Male

DRUGS (3)
  1. GEODON [Suspect]
     Indication: ILL-DEFINED DISORDER
     Dosage: 80 MG (BID), ORAL
     Route: 048
     Dates: start: 20030818
  2. ZITHROMAX [Suspect]
     Indication: PNEUMONIA
     Dates: start: 20031101
  3. DONEPEZIL HCL [Suspect]
     Indication: ILL-DEFINED DISORDER
     Dates: start: 20031022

REACTIONS (11)
  - ABNORMAL BEHAVIOUR [None]
  - ACCIDENT [None]
  - AGITATION [None]
  - ARRHYTHMIA [None]
  - CORONARY ARTERY ATHEROSCLEROSIS [None]
  - DYSPHAGIA [None]
  - DYSPHASIA [None]
  - HYPOXIA [None]
  - MYOCARDIAL INFARCTION [None]
  - PNEUMONIA ASPIRATION [None]
  - PSYCHOTIC DISORDER [None]
